FAERS Safety Report 14025481 (Version 3)
Quarter: 2017Q4

REPORT INFORMATION
  Report Type: Spontaneous
  Country: US (occurrence: US)
  Receive Date: 20170929
  Receipt Date: 20171208
  Transmission Date: 20180321
  Serious: Yes (Hospitalization, Other)
  Sender: FDA-Public Use
  Company Number: US-GLAXOSMITHKLINE-US2017GSK149665

PATIENT
  Age: 66 Year
  Sex: Female

DRUGS (19)
  1. LEVOTHYROXINE. [Concomitant]
     Active Substance: LEVOTHYROXINE
  2. MELATONIN [Concomitant]
     Active Substance: MELATONIN
  3. SUMATRIPTAN. [Concomitant]
     Active Substance: SUMATRIPTAN
  4. PROAIR HFA [Concomitant]
     Active Substance: ALBUTEROL SULFATE
  5. MAGNESIUM [Concomitant]
     Active Substance: MAGNESIUM
  6. LIOTHYRONINE [Concomitant]
     Active Substance: LIOTHYRONINE
  7. ATIVAN [Concomitant]
     Active Substance: LORAZEPAM
  8. KLONOPIN [Concomitant]
     Active Substance: CLONAZEPAM
  9. LEXAPRO [Concomitant]
     Active Substance: ESCITALOPRAM OXALATE
  10. REQUIP XL [Suspect]
     Active Substance: ROPINIROLE HYDROCHLORIDE
     Dosage: 12 MG, UNK
     Route: 048
  11. ROPINIROLE HYDROCHLORIDE. [Suspect]
     Active Substance: ROPINIROLE HYDROCHLORIDE
     Indication: RESTLESS LEGS SYNDROME
     Dosage: 4 MG, UNK
     Dates: end: 201709
  12. BIOTIN [Concomitant]
     Active Substance: BIOTIN
  13. ROPINIROLE HYDROCHLORIDE. [Suspect]
     Active Substance: ROPINIROLE HYDROCHLORIDE
     Dosage: 12 MG, UNK
  14. SEROQUEL [Concomitant]
     Active Substance: QUETIAPINE FUMARATE
  15. REQUIP XL [Suspect]
     Active Substance: ROPINIROLE HYDROCHLORIDE
     Indication: RESTLESS LEGS SYNDROME
     Dosage: 4 MG, UNK
     Route: 048
     Dates: start: 201701
  16. LAMICTAL [Concomitant]
     Active Substance: LAMOTRIGINE
  17. ABILIFY [Concomitant]
     Active Substance: ARIPIPRAZOLE
  18. GABAPENTIN. [Concomitant]
     Active Substance: GABAPENTIN
  19. MIRALAX [Concomitant]
     Active Substance: POLYETHYLENE GLYCOL 3350

REACTIONS (6)
  - Product quality issue [Unknown]
  - Restless legs syndrome [Recovered/Resolved]
  - Product substitution issue [Unknown]
  - Immunoglobulins abnormal [Recovered/Resolved]
  - Transfusion [Recovered/Resolved]
  - Condition aggravated [Recovered/Resolved]

NARRATIVE: CASE EVENT DATE: 20170105
